FAERS Safety Report 17620736 (Version 2)
Quarter: 2020Q2

REPORT INFORMATION
  Report Type: Spontaneous
  Country: GB (occurrence: GB)
  Receive Date: 20200403
  Receipt Date: 20200430
  Transmission Date: 20200713
  Serious: Yes (Other)
  Sender: FDA-Public Use
  Company Number: GB-EMD SERONO-9153761

PATIENT
  Sex: Female

DRUGS (2)
  1. REBIF [Suspect]
     Active Substance: INTERFERON BETA-1A
     Dosage: 0.5ML (12MILLION UNITS) SOLUTION FOR INJECTION PRE-FILLED SYRINGES
  2. REBIF [Suspect]
     Active Substance: INTERFERON BETA-1A
     Indication: MULTIPLE SCLEROSIS
     Dosage: 0.5ML (12MILLION UNITS) SOLUTION FOR INJECTION PRE-FILLED SYRINGES
     Route: 058

REACTIONS (1)
  - Wound infection [Not Recovered/Not Resolved]
